FAERS Safety Report 8308641-6 (Version None)
Quarter: 2012Q2

REPORT INFORMATION
  Report Type: 
  Country: None (occurrence: None)
  Receive Date: 20120424
  Receipt Date: 20100702
  Transmission Date: 20120825
  Serious: Yes (Other)
  Sender: FDA-Public Use
  Company Number: US-TEVA-2010003225

PATIENT
  Sex: Female

DRUGS (1)
  1. PROVIGIL [Suspect]
     Indication: SOMNOLENCE
     Dosage: 200 MILLIGRAM;
     Route: 048
     Dates: end: 20100530

REACTIONS (4)
  - WEIGHT DECREASED [None]
  - SUICIDAL IDEATION [None]
  - MENTAL IMPAIRMENT [None]
  - ANXIETY [None]
